FAERS Safety Report 23029414 (Version 1)
Quarter: 2023Q4

REPORT INFORMATION
  Report Type: Spontaneous
  Country: CN (occurrence: CN)
  Receive Date: 20231004
  Receipt Date: 20231004
  Transmission Date: 20240110
  Serious: Yes (Other)
  Sender: FDA-Public Use
  Company Number: CN-PFIZER INC-PV202300163670

PATIENT
  Age: 62 Year
  Sex: Male
  Weight: 45 kg

DRUGS (4)
  1. LINEZOLID [Suspect]
     Active Substance: LINEZOLID
     Indication: Pulmonary nocardiosis
     Dosage: 0.6 G, 2X/DAY
     Route: 048
     Dates: start: 20230712, end: 20230911
  2. SULFAMETHOXAZOLE [Suspect]
     Active Substance: SULFAMETHOXAZOLE
     Indication: Pulmonary nocardiosis
     Dosage: 2 DF, 1X/DAY
     Route: 048
     Dates: start: 20230622, end: 20230704
  3. SULFAMETHOXAZOLE [Suspect]
     Active Substance: SULFAMETHOXAZOLE
     Indication: Nausea
     Dosage: 2 DF, 3X/DAY
     Route: 048
     Dates: start: 20230705, end: 20230904
  4. SULFAMETHOXAZOLE [Suspect]
     Active Substance: SULFAMETHOXAZOLE
     Indication: Decreased appetite

REACTIONS (1)
  - Haemoglobin decreased [Recovering/Resolving]

NARRATIVE: CASE EVENT DATE: 20230721
